FAERS Safety Report 10488536 (Version 1)
Quarter: 2014Q4

REPORT INFORMATION
  Report Type: Spontaneous
  Country: US (occurrence: None)
  Receive Date: 20141001
  Receipt Date: 20141001
  Transmission Date: 20150528
  Serious: Yes (Other)
  Sender: FDA-Public Use
  Company Number: None

PATIENT
  Age: 48 Year
  Sex: Female
  Weight: 81.65 kg

DRUGS (1)
  1. BUPROPION [Suspect]
     Active Substance: BUPROPION
     Indication: DEPRESSION
     Dosage: 3 PILLS ONCE DAILY TAKEN BY MOUTH?
     Route: 048

REACTIONS (3)
  - Memory impairment [None]
  - Amnesia [None]
  - Activities of daily living impaired [None]
